FAERS Safety Report 12494060 (Version 3)
Quarter: 2016Q3

REPORT INFORMATION
  Report Type: Report from Study
  Country: US (occurrence: US)
  Receive Date: 20160623
  Receipt Date: 20160815
  Transmission Date: 20161109
  Serious: Yes (Hospitalization)
  Sender: FDA-Public Use
  Company Number: US-ALEXION-A201604540

PATIENT
  Age: 44 Year
  Sex: Male

DRUGS (10)
  1. COREG [Concomitant]
     Active Substance: CARVEDILOL
     Indication: HAEMOLYTIC URAEMIC SYNDROME
     Dosage: 25 MG, BID
     Route: 048
  2. TENEX [Concomitant]
     Active Substance: GUANFACINE HYDROCHLORIDE
     Indication: PRODUCT USED FOR UNKNOWN INDICATION
     Dosage: 1 MG, QD
     Route: 048
  3. DELTASONE [Concomitant]
     Active Substance: PREDNISONE
     Dosage: 60 MG, QD
     Route: 065
  4. ATORVASTATIN [Concomitant]
     Active Substance: ATORVASTATIN
     Indication: PRODUCT USED FOR UNKNOWN INDICATION
     Dosage: 10 MG, QD
     Route: 048
  5. LASIX [Concomitant]
     Active Substance: FUROSEMIDE
     Indication: PRODUCT USED FOR UNKNOWN INDICATION
     Dosage: 40 MG, QD
     Route: 048
  6. TENEX [Concomitant]
     Active Substance: GUANFACINE HYDROCHLORIDE
     Dosage: 2 MG, QHS
     Route: 048
     Dates: start: 201604
  7. ECULIZUMAB [Suspect]
     Active Substance: ECULIZUMAB
     Indication: HAEMOLYTIC URAEMIC SYNDROME
     Dosage: 1200 MG, Q2W
     Route: 042
     Dates: start: 20121227
  8. ECULIZUMAB [Suspect]
     Active Substance: ECULIZUMAB
     Dosage: 1200 MG, QD
     Route: 042
     Dates: start: 201604, end: 201604
  9. DELTASONE [Concomitant]
     Active Substance: PREDNISONE
     Indication: HAEMOLYTIC URAEMIC SYNDROME
     Dosage: 100 MG, UNK
     Route: 065
  10. ALPRAZOLAM. [Concomitant]
     Active Substance: ALPRAZOLAM
     Indication: PRODUCT USED FOR UNKNOWN INDICATION
     Dosage: 0.25 MG, QID
     Route: 048

REACTIONS (1)
  - Normochromic normocytic anaemia [Recovered/Resolved]

NARRATIVE: CASE EVENT DATE: 20160422
